FAERS Safety Report 6089032-8 (Version None)
Quarter: 2009Q1

REPORT INFORMATION
  Report Type: 
  Country: None (occurrence: None)
  Receive Date: 20090224
  Receipt Date: 20090220
  Transmission Date: 20090719
  Serious: Yes (Death, Other)
  Sender: FDA-Public Use
  Company Number: A0769523A

PATIENT
  Age: 49 Year
  Sex: Male

DRUGS (9)
  1. PAXIL [Suspect]
     Indication: DEPRESSION
     Dosage: 30MG TWICE PER DAY
     Route: 048
     Dates: start: 20050101
  2. ALCOHOL [Suspect]
  3. ATIVAN [Suspect]
     Indication: ANXIETY
     Dosage: 2MG TWICE PER DAY
     Route: 048
     Dates: start: 20070101
  4. CYCLOBENZAPRINE [Suspect]
     Indication: DRUG USE FOR UNKNOWN INDICATION
     Route: 048
  5. KLONOPIN [Suspect]
     Indication: AGORAPHOBIA
     Dosage: 2MG AS REQUIRED
     Route: 048
     Dates: start: 20070101
  6. METOPROLOL [Suspect]
     Indication: DRUG USE FOR UNKNOWN INDICATION
     Route: 048
  7. REMERON [Suspect]
     Indication: DEPRESSION
     Dosage: 45MG PER DAY
     Route: 048
     Dates: start: 20070101
  8. SEROQUEL [Suspect]
     Dosage: 300MG PER DAY
     Route: 048
     Dates: start: 20050101
  9. TRAMADOL HCL [Suspect]
     Indication: DRUG USE FOR UNKNOWN INDICATION
     Route: 048

REACTIONS (1)
  - COMPLETED SUICIDE [None]
